FAERS Safety Report 7202979-1 (Version None)
Quarter: 2010Q4

REPORT INFORMATION
  Report Type: 
  Country: None (occurrence: None)
  Receive Date: 20101229
  Receipt Date: 20101224
  Transmission Date: 20110411
  Serious: Yes (Other)
  Sender: FDA-Public Use
  Company Number: JP-PFIZER INC-2010179548

PATIENT
  Age: 49 Year
  Sex: Male

DRUGS (4)
  1. CELECOXIB [Suspect]
     Dosage: 200 MG DAILY
     Route: 048
     Dates: start: 20100101
  2. TAKEPRON [Concomitant]
  3. LIVACT [Concomitant]
  4. HALCION [Concomitant]

REACTIONS (1)
  - TETANY [None]
